FAERS Safety Report 11023477 (Version 2)
Quarter: 2015Q2

REPORT INFORMATION
  Report Type: Spontaneous
  Country: US (occurrence: US)
  Receive Date: 20150413
  Receipt Date: 20150501
  Transmission Date: 20150821
  Serious: No
  Sender: FDA-Public Use
  Company Number: US-PFIZER INC-2015120271

PATIENT
  Age: 12 Year
  Sex: Female

DRUGS (2)
  1. COCONUT OIL [Suspect]
     Active Substance: COCONUT OIL
     Dosage: UNK
     Dates: start: 20150401
  2. ADVIL [Suspect]
     Active Substance: IBUPROFEN
     Dosage: 1 LIQUI-GEL CAPSULE
     Dates: start: 20150401

REACTIONS (2)
  - Nausea [Unknown]
  - Reaction to drug excipients [Unknown]

NARRATIVE: CASE EVENT DATE: 201504
